FAERS Safety Report 15466745 (Version 1)
Quarter: 2018Q4

REPORT INFORMATION
  Report Type: Spontaneous
  Country: US (occurrence: US)
  Receive Date: 20181005
  Receipt Date: 20181005
  Transmission Date: 20190204
  Serious: Yes (Other)
  Sender: FDA-Public Use
  Company Number: US-ABBVIE-18K-163-2507857-00

PATIENT

DRUGS (1)
  1. MAVYRET [Suspect]
     Active Substance: GLECAPREVIR\PIBRENTASVIR
     Indication: HEPATITIS C
     Route: 048

REACTIONS (6)
  - Dyspepsia [Unknown]
  - Hepatic cirrhosis [Unknown]
  - Energy increased [Recovering/Resolving]
  - Liver disorder [Unknown]
  - Headache [Unknown]
  - Insomnia [Unknown]
